FAERS Safety Report 8238728-8 (Version None)
Quarter: 2012Q1

REPORT INFORMATION
  Report Type: 
  Country: None (occurrence: None)
  Receive Date: 20120327
  Receipt Date: 20120322
  Transmission Date: 20120608
  Serious: Yes (Other)
  Sender: FDA-Public Use
  Company Number: US-FRI-1000029285

PATIENT
  Age: 58 Year
  Sex: Male

DRUGS (3)
  1. VIIBRYD [Suspect]
     Dosage: 20 MG
  2. VIIBRYD [Suspect]
     Dosage: 40 MG
  3. VIIBRYD [Suspect]
     Indication: DEPRESSION
     Dosage: 10 MG

REACTIONS (1)
  - SUICIDAL IDEATION [None]
